FAERS Safety Report 24721046 (Version 2)
Quarter: 2024Q4

REPORT INFORMATION
  Report Type: Spontaneous
  Country: PL (occurrence: PL)
  Receive Date: 20241211
  Receipt Date: 20241216
  Transmission Date: 20250115
  Serious: Yes (Other)
  Sender: SANDOZ
  Company Number: None

PATIENT
  Age: 65 Year
  Sex: Female

DRUGS (25)
  1. ENALAPRIL MALEATE\HYDROCHLOROTHIAZIDE [Suspect]
     Active Substance: ENALAPRIL MALEATE\HYDROCHLOROTHIAZIDE
     Indication: Hypertension
     Dosage: 12.5 MG, 1X/DAY (HYDROCHLOROTHIAZIDE)
     Route: 065
  2. ENALAPRIL MALEATE\HYDROCHLOROTHIAZIDE [Suspect]
     Active Substance: ENALAPRIL MALEATE\HYDROCHLOROTHIAZIDE
     Indication: Arrhythmia supraventricular
     Dosage: 16 MG, 1X/DAY (ENALAPRIL)
     Route: 065
  3. ENALAPRIL MALEATE\HYDROCHLOROTHIAZIDE [Suspect]
     Active Substance: ENALAPRIL MALEATE\HYDROCHLOROTHIAZIDE
     Indication: Hyperlipidaemia
     Dosage: UNK
     Route: 065
  4. ASPIRIN [Interacting]
     Active Substance: ASPIRIN
     Indication: Arrhythmia
     Dosage: 75 MG / D
     Route: 048
  5. ASPIRIN [Interacting]
     Active Substance: ASPIRIN
     Indication: Atrial fibrillation
  6. AMLODIPINE BESYLATE [Interacting]
     Active Substance: AMLODIPINE BESYLATE
     Indication: Hypertension
     Dosage: 5 MG / D
     Route: 048
  7. AMLODIPINE BESYLATE [Interacting]
     Active Substance: AMLODIPINE BESYLATE
     Indication: Arrhythmia
  8. AMLODIPINE BESYLATE [Interacting]
     Active Substance: AMLODIPINE BESYLATE
     Indication: Atrial fibrillation
  9. ATORVASTATIN [Interacting]
     Active Substance: ATORVASTATIN
     Indication: Hyperlipidaemia
     Dosage: 20 MG, QD
     Route: 048
  10. AMITRIPTYLINE [Interacting]
     Active Substance: AMITRIPTYLINE
     Indication: Depression
     Dosage: 225 MG / D
     Route: 065
  11. AMITRIPTYLINE [Interacting]
     Active Substance: AMITRIPTYLINE
     Dosage: 25 MG, QD (GRADUALLY WITHDRAWN WITHIN 14 DAYS)
     Route: 065
  12. BUSPIRONE [Interacting]
     Active Substance: BUSPIRONE HYDROCHLORIDE
     Indication: Depression
     Dosage: 10 MG / D
     Route: 065
  13. CANDESARTAN CILEXETIL\HYDROCHLOROTHIAZIDE [Interacting]
     Active Substance: CANDESARTAN CILEXETIL\HYDROCHLOROTHIAZIDE
     Indication: Hypertension
     Dosage: 1 DF, QD(16 MG + 12.5 MG DAILY)
     Route: 048
  14. CANDESARTAN CILEXETIL\HYDROCHLOROTHIAZIDE [Interacting]
     Active Substance: CANDESARTAN CILEXETIL\HYDROCHLOROTHIAZIDE
     Indication: Arrhythmia
  15. CANDESARTAN CILEXETIL\HYDROCHLOROTHIAZIDE [Interacting]
     Active Substance: CANDESARTAN CILEXETIL\HYDROCHLOROTHIAZIDE
     Indication: Atrial fibrillation
  16. LANSOPRAZOLE [Interacting]
     Active Substance: LANSOPRAZOLE
     Indication: Product used for unknown indication
     Dosage: 15 MG / D
     Route: 048
  17. LAMOTRIGINE [Interacting]
     Active Substance: LAMOTRIGINE
     Indication: Depression
     Dosage: 150 MG / D
     Route: 048
  18. LEVOMEPROMAZINE [Interacting]
     Active Substance: LEVOMEPROMAZINE
     Indication: Depression
     Dosage: 50 MG AT BEDTIME
     Route: 065
  19. PERAZINE [Interacting]
     Active Substance: PERAZINE
     Indication: Depression
     Dosage: 75 MG / D
     Route: 048
  20. PROPAFENONE [Interacting]
     Active Substance: PROPAFENONE
     Indication: Arrhythmia
     Dosage: 450 MG / D
     Route: 048
  21. PROPAFENONE [Interacting]
     Active Substance: PROPAFENONE
     Indication: Arrhythmia supraventricular
  22. PROPAFENONE [Interacting]
     Active Substance: PROPAFENONE
     Indication: Atrial fibrillation
  23. SERTRALINE HYDROCHLORIDE [Interacting]
     Active Substance: SERTRALINE HYDROCHLORIDE
     Indication: Depression
     Dosage: 100 MG IN THE MORNING (GRADUALLY WITHDRAWN WITHIN 14 DAYS)
     Route: 048
  24. SULPIRIDE ADAMANTANECARBOXYLATE [Interacting]
     Active Substance: SULPIRIDE ADAMANTANECARBOXYLATE
     Indication: Depression
     Dosage: 150 MG / D
     Route: 065
  25. VINPOCETINE [Interacting]
     Active Substance: VINPOCETINE
     Indication: Depression
     Dosage: 15 MG / D
     Route: 065

REACTIONS (23)
  - Somnolence [Recovered/Resolved]
  - Anxiety [Recovered/Resolved]
  - Cognitive disorder [Recovered/Resolved]
  - Drug interaction [Recovered/Resolved]
  - Extrapyramidal disorder [Recovered/Resolved]
  - Balance disorder [Recovering/Resolving]
  - Nervous system disorder [Unknown]
  - Emotional poverty [Recovered/Resolved]
  - Sleep disorder [Recovering/Resolving]
  - Psychomotor retardation [Recovering/Resolving]
  - Depressed mood [Recovering/Resolving]
  - Bradykinesia [Recovered/Resolved]
  - Anhedonia [Recovered/Resolved]
  - Flat affect [Recovering/Resolving]
  - Mental disorder [Recovering/Resolving]
  - Overweight [Unknown]
  - Disturbance in attention [Recovering/Resolving]
  - Depression [Recovering/Resolving]
  - Fall [Recovered/Resolved]
  - Amnesia [Recovering/Resolving]
  - Fatigue [Recovering/Resolving]
  - Dizziness [Recovered/Resolved]
  - Drug ineffective [Recovering/Resolving]
